FAERS Safety Report 5087536-8 (Version None)
Quarter: 2006Q3

REPORT INFORMATION
  Report Type: 
  Country: None (occurrence: None)
  Receive Date: 20060824
  Receipt Date: 20060804
  Transmission Date: 20061208
  Serious: Yes (Hospitalization, Other)
  Sender: FDA-Public Use
  Company Number: CN-GLAXOSMITHKLINE-B0433318A

PATIENT
  Age: 65 Year
  Sex: Male
  Weight: 78 kg

DRUGS (6)
  1. HEPSERA [Suspect]
     Indication: HEPATITIS B
     Dosage: 10MG PER DAY
     Route: 048
     Dates: start: 20060610, end: 20060625
  2. HEPTODIN [Suspect]
     Indication: HEPATITIS B
     Dosage: 100MG UNKNOWN
     Route: 048
     Dates: start: 20050901
  3. ADEFOVIR DIPIVOXIL KIT [Concomitant]
  4. CHINESE TRADITIONAL MEDICATION [Concomitant]
     Dosage: 2U THREE TIMES PER DAY
     Route: 048
     Dates: start: 19950101
  5. NIFEDIPINE [Concomitant]
     Indication: HYPERTENSION
     Dosage: 20MG VARIABLE DOSE
     Route: 048
     Dates: start: 20000101
  6. LIVER SUPPORTING AGENT [Concomitant]
     Route: 065

REACTIONS (9)
  - ASTHENIA [None]
  - CHROMATURIA [None]
  - COUGH [None]
  - DYSPNOEA [None]
  - EYE HAEMORRHAGE [None]
  - HBV DNA INCREASED [None]
  - HEPATITIS [None]
  - RASH [None]
  - VIRAL MUTATION IDENTIFIED [None]
